FAERS Safety Report 8415859-0 (Version None)
Quarter: 2012Q2

REPORT INFORMATION
  Report Type: 
  Country: None (occurrence: None)
  Receive Date: 20120606
  Receipt Date: 20120529
  Transmission Date: 20120825
  Serious: Yes (Other)
  Sender: FDA-Public Use
  Company Number: CA-JNJFOC-20120520712

PATIENT
  Sex: Female

DRUGS (8)
  1. IRON [Concomitant]
     Route: 065
  2. REMICADE [Suspect]
     Indication: CROHN'S DISEASE
     Route: 042
     Dates: start: 20060101
  3. PANTOPRAZOLE SODIUM [Concomitant]
     Route: 065
  4. METAMUCIL-2 [Concomitant]
     Route: 065
  5. IMURAN [Concomitant]
     Route: 065
  6. IMODIUM [Concomitant]
     Route: 065
  7. MACROBID [Concomitant]
     Route: 065
  8. ALL OTHER THERAPEUTICS [Concomitant]
     Route: 065

REACTIONS (1)
  - ANIMAL BITE [None]
